FAERS Safety Report 23691395 (Version 3)
Quarter: 2024Q2

REPORT INFORMATION
  Report Type: Spontaneous
  Country: US (occurrence: US)
  Receive Date: 20240401
  Receipt Date: 20240430
  Transmission Date: 20240716
  Serious: Yes (Other)
  Sender: FDA-Public Use
  Company Number: US-JNJFOC-20240369509

PATIENT
  Sex: Female

DRUGS (4)
  1. SPRAVATO [Suspect]
     Active Substance: ESKETAMINE
     Indication: Product used for unknown indication
  2. SPRAVATO [Suspect]
     Active Substance: ESKETAMINE
     Dates: start: 20240320
  3. SPRAVATO [Suspect]
     Active Substance: ESKETAMINE
     Dates: start: 2024
  4. SPRAVATO [Suspect]
     Active Substance: ESKETAMINE
     Dates: start: 2024

REACTIONS (3)
  - Paralysis [Unknown]
  - Dissociation [Unknown]
  - Therapeutic product effect decreased [Unknown]

NARRATIVE: CASE EVENT DATE: 20240101
